FAERS Safety Report 4913882-1 (Version None)
Quarter: 2006Q1

REPORT INFORMATION
  Report Type: 
  Country: None (occurrence: None)
  Receive Date: 20060216
  Receipt Date: 20051020
  Transmission Date: 20060701
  Serious: Yes (Hospitalization)
  Sender: FDA-Public Use
  Company Number: US-MERCK-0510USA08465

PATIENT
  Age: 43 Year
  Sex: Male

DRUGS (1)
  1. VIOXX [Suspect]
     Indication: ARTHRALGIA
     Route: 048
     Dates: start: 20001201, end: 20030401

REACTIONS (15)
  - ARTHROPATHY [None]
  - BACK PAIN [None]
  - BRONCHIAL HYPERACTIVITY [None]
  - CARDIOVASCULAR DISORDER [None]
  - CHEST DISCOMFORT [None]
  - DEPRESSION [None]
  - JOINT DISLOCATION [None]
  - MALAISE [None]
  - NECK PAIN [None]
  - PAIN [None]
  - PERIARTHRITIS [None]
  - SINUS ARRHYTHMIA [None]
  - SPINAL COLUMN STENOSIS [None]
  - SPINAL OSTEOARTHRITIS [None]
  - SYNCOPE [None]
